FAERS Safety Report 7941332-X (Version None)
Quarter: 2011Q4

REPORT INFORMATION
  Report Type: 
  Country: None (occurrence: None)
  Receive Date: 20111128
  Receipt Date: 20111118
  Transmission Date: 20120403
  Serious: Yes (Life-Threatening)
  Sender: FDA-Public Use
  Company Number: GB-JNJFOC-20111108682

PATIENT
  Age: 15 Year
  Sex: Male
  Weight: 78.2 kg

DRUGS (2)
  1. METHOTREXATE [Concomitant]
     Route: 065
  2. REMICADE [Suspect]
     Indication: UVEITIS
     Route: 042
     Dates: start: 20080811, end: 20111111

REACTIONS (1)
  - ANAPHYLACTIC REACTION [None]
